FAERS Safety Report 7504138-1 (Version None)
Quarter: 2011Q2

REPORT INFORMATION
  Report Type: 
  Country: None (occurrence: None)
  Receive Date: 20110525
  Receipt Date: 20110512
  Transmission Date: 20111010
  Serious: No
  Sender: FDA-Public Use
  Company Number: US-B.I. PHARMACEUTICALS,INC./RIDGEFIELD-2011-BP-13000BP

PATIENT
  Sex: Female

DRUGS (7)
  1. ALLEGRA [Suspect]
     Indication: HYPERSENSITIVITY
     Dosage: 180 MG
     Dates: start: 20110401
  2. ASTEPRO [Suspect]
  3. SPIRIVA [Suspect]
  4. NASONEX [Suspect]
  5. BROVANA [Suspect]
  6. ADVAIR DISKUS 100/50 [Suspect]
  7. ALBUTEROL SULFATE AUTOHALER [Suspect]

REACTIONS (4)
  - BLOOD PRESSURE INCREASED [None]
  - CHEST PAIN [None]
  - DYSPEPSIA [None]
  - HEART RATE INCREASED [None]
